FAERS Safety Report 5749522-1 (Version None)
Quarter: 2008Q2

REPORT INFORMATION
  Report Type: 
  Country: None (occurrence: None)
  Receive Date: 20080527
  Receipt Date: 20080519
  Transmission Date: 20081010
  Serious: Yes (Other)
  Sender: FDA-Public Use
  Company Number: B0521868A

PATIENT
  Age: 55 Year
  Sex: Male
  Weight: 60 kg

DRUGS (5)
  1. ARIXTRA [Suspect]
     Dosage: 2.5MG PER DAY
     Route: 058
     Dates: start: 20060523, end: 20060529
  2. KETOPROFEN [Concomitant]
     Route: 065
     Dates: start: 20060523, end: 20060524
  3. FRAXIPARINE [Concomitant]
     Dosage: .4ML PER DAY
     Route: 065
     Dates: start: 20060530
  4. ANTIBIOTICS [Concomitant]
     Route: 065
  5. MORPHINE [Concomitant]
     Route: 051
     Dates: start: 20060523

REACTIONS (4)
  - HAEMATOMA [None]
  - HAEMOGLOBIN DECREASED [None]
  - INAPPROPRIATE SCHEDULE OF DRUG ADMINISTRATION [None]
  - INCISION SITE HAEMORRHAGE [None]
